FAERS Safety Report 21339741 (Version 4)
Quarter: 2022Q3

REPORT INFORMATION
  Report Type: Spontaneous
  Country: US (occurrence: US)
  Receive Date: 20220915
  Receipt Date: 20220930
  Transmission Date: 20221026
  Serious: No
  Sender: FDA-Public Use
  Company Number: US-SANOFI-01276119

PATIENT
  Age: 57 Year
  Sex: Female

DRUGS (2)
  1. ADMELOG [Suspect]
     Active Substance: INSULIN LISPRO
     Indication: Diabetes mellitus
     Dosage: 10 IU, TID
  2. INSULIN GLARGINE YFGN [Concomitant]
     Dosage: 30 UNK

REACTIONS (4)
  - Hypoacusis [Unknown]
  - Visual impairment [Unknown]
  - Product storage error [Unknown]
  - Intentional product misuse [Unknown]
